FAERS Safety Report 5142503-0 (Version None)
Quarter: 2006Q4

REPORT INFORMATION
  Report Type: 
  Country: None (occurrence: None)
  Receive Date: 20061027
  Receipt Date: 20061019
  Transmission Date: 20070319
  Serious: Yes (Hospitalization)
  Sender: FDA-Public Use
  Company Number: 163-20785-06101033

PATIENT
  Age: 61 Year
  Sex: Female
  Weight: 73 kg

DRUGS (19)
  1. THALOMID [Suspect]
     Indication: MULTIPLE MYELOMA
     Dosage: 200 MG, QD, ORAL
     Route: 048
     Dates: start: 20060810, end: 20060813
  2. BORTEZOMIB (BORTEZOMIB) [Suspect]
     Indication: MULTIPLE MYELOMA
     Dosage: 1.9 MG, INTRAVENOUS
     Route: 042
     Dates: start: 20060810
  3. BORTEZOMIB (BORTEZOMIB) [Suspect]
     Indication: MULTIPLE MYELOMA
     Dosage: 1.9 MG, INTRAVENOUS
     Route: 042
     Dates: start: 20060813
  4. BORTEZOMIB (BORTEZOMIB) [Suspect]
     Indication: MULTIPLE MYELOMA
     Dosage: 1.9 MG, INTRAVENOUS
     Route: 042
     Dates: start: 20060817
  5. DEXAMETHASONE TAB [Suspect]
     Indication: MULTIPLE MYELOMA
     Dosage: 40 MG, QD, ORAL
     Route: 048
     Dates: start: 20060810, end: 20060813
  6. CISPLATIN [Suspect]
     Indication: MULTIPLE MYELOMA
     Dosage: 14 MG, QD, INTRAVENOUS
     Route: 042
     Dates: start: 20060810, end: 20060813
  7. ADRIAMYCIN PFS [Suspect]
     Indication: MULTIPLE MYELOMA
     Dosage: 14 MG, QD, INTRAVENOUS
     Route: 042
     Dates: start: 20060810, end: 20060813
  8. CYCLOPHOSPHAMIDE [Suspect]
     Indication: MULTIPLE MYELOMA
     Dosage: 560 MG, QD, INTRAVENOUS
     Route: 042
     Dates: start: 20060810, end: 20060813
  9. ETOPOSIDE [Suspect]
     Indication: MULTIPLE MYELOMA
     Dosage: 56 MG, QD, INTRAVENOUS
     Route: 042
     Dates: start: 20060810, end: 20060813
  10. PROCRIT [Concomitant]
  11. PREMARIN [Concomitant]
  12. OS-CAL (OS-CAL) [Concomitant]
  13. ZOMETA [Concomitant]
  14. LOVENOX [Concomitant]
  15. ACYCLOVIR [Concomitant]
  16. ZANTAC [Concomitant]
  17. SENNA (SENNA) [Concomitant]
  18. DOCUSATE (DOCUSATE) [Concomitant]
  19. LASIX [Concomitant]

REACTIONS (4)
  - COLITIS [None]
  - DEHYDRATION [None]
  - FEBRILE NEUTROPENIA [None]
  - PLEURITIC PAIN [None]
